FAERS Safety Report 8432361-0 (Version None)
Quarter: 2012Q2

REPORT INFORMATION
  Report Type: 
  Country: None (occurrence: None)
  Receive Date: 20120613
  Receipt Date: 20120605
  Transmission Date: 20120825
  Serious: Yes (Hospitalization, Other)
  Sender: FDA-Public Use
  Company Number: DE-ELI_LILLY_AND_COMPANY-DE201206001525

PATIENT
  Sex: Female

DRUGS (5)
  1. ANTIBIOTICS [Concomitant]
  2. ASPIRIN [Concomitant]
  3. FORTEO [Suspect]
     Indication: OSTEOPOROSIS
     Dosage: UNK, QD
     Route: 058
     Dates: start: 20120416
  4. ARCOXIA [Concomitant]
  5. ANALGESICS [Concomitant]

REACTIONS (2)
  - FLUSHING [None]
  - SPINAL OPERATION [None]
